FAERS Safety Report 26142925 (Version 1)
Quarter: 2025Q4

REPORT INFORMATION
  Report Type: Spontaneous
  Country: GB (occurrence: GB)
  Receive Date: 20251211
  Receipt Date: 20251211
  Transmission Date: 20260118
  Serious: Yes (Other)
  Sender: HETERO
  Company Number: None

PATIENT
  Age: 66 Year
  Sex: Female
  Weight: 74 kg

DRUGS (1)
  1. METFORMIN [Suspect]
     Active Substance: METFORMIN HYDROCHLORIDE
     Indication: Type 2 diabetes mellitus
     Dosage: 2 DOSAGE FORM (AT BREAKFAST AND TEA TIME)
     Route: 065
     Dates: start: 20250407, end: 20250522

REACTIONS (2)
  - Depressed mood [Recovering/Resolving]
  - Mood altered [Recovering/Resolving]
